FAERS Safety Report 24566170 (Version 1)
Quarter: 2024Q4

REPORT INFORMATION
  Report Type: Spontaneous
  Country: NL (occurrence: NL)
  Receive Date: 20241030
  Receipt Date: 20241030
  Transmission Date: 20250114
  Serious: Yes (Death, Other)
  Sender: AMGEN
  Company Number: NL-AMGEN-NLDSP2024211745

PATIENT

DRUGS (7)
  1. BEVACIZUMAB [Suspect]
     Active Substance: BEVACIZUMAB
     Indication: Colorectal cancer metastatic
     Dosage: TWO TO FOUR MONTHS OF INITIAL SYSTEMIC THERAPY
     Route: 065
  2. CAPECITABINE [Concomitant]
     Active Substance: CAPECITABINE
  3. OXALIPLATIN [Concomitant]
     Active Substance: OXALIPLATIN
  4. FLUOROURACIL [Concomitant]
     Active Substance: FLUOROURACIL
  5. LEUCOVORIN [Concomitant]
     Active Substance: LEUCOVORIN\LEUCOVORIN CALCIUM
  6. IRINOTECAN [Concomitant]
     Active Substance: IRINOTECAN
  7. FLUOROURACIL [Concomitant]
     Active Substance: FLUOROURACIL

REACTIONS (5)
  - Pelvic abscess [Fatal]
  - Rectal cancer recurrent [Fatal]
  - Colorectal cancer metastatic [Unknown]
  - Chest pain [Unknown]
  - Therapy partial responder [Unknown]
